FAERS Safety Report 8886738 (Version 1)
Quarter: 2012Q4

REPORT INFORMATION
  Report Type: 
  Country: BR (occurrence: BR)
  Receive Date: 20121105
  Receipt Date: 20121105
  Transmission Date: 20130627
  Serious: Yes (Hospitalization, Other)
  Sender: FDA-Public Use
  Company Number: BR-PFIZER INC-2012272509

PATIENT
  Age: 50 Year
  Sex: Female
  Weight: 75 kg

DRUGS (1)
  1. ALDACTONE [Suspect]
     Indication: HIGH CHOLESTEROL

REACTIONS (5)
  - Infarction [Unknown]
  - Infarction [Unknown]
  - Myocardial infarction [Unknown]
  - Hypoaesthesia [Unknown]
  - Off label use [Unknown]
